FAERS Safety Report 7691531-X (Version None)
Quarter: 2011Q3

REPORT INFORMATION
  Report Type: 
  Country: None (occurrence: None)
  Receive Date: 20110817
  Receipt Date: 20110817
  Transmission Date: 20111222
  Serious: Yes (Hospitalization)
  Sender: FDA-Public Use
  Company Number: None

PATIENT
  Sex: Male
  Weight: 81 kg

DRUGS (1)
  1. CISPLATIN [Suspect]
     Dosage: 400 MG
     Dates: end: 20070129

REACTIONS (6)
  - DIZZINESS [None]
  - ODYNOPHAGIA [None]
  - SYNCOPE [None]
  - DEHYDRATION [None]
  - FLUID INTAKE REDUCED [None]
  - RADIATION SICKNESS SYNDROME [None]
